FAERS Safety Report 23657875 (Version 1)
Quarter: 2024Q1

REPORT INFORMATION
  Report Type: Other
  Country: GB (occurrence: GB)
  Receive Date: 20240321
  Receipt Date: 20240321
  Transmission Date: 20240409
  Serious: Yes (Hospitalization, Other)
  Sender: FDA-Public Use
  Company Number: GB-IPSEN Group, Research and Development-2023-09009

PATIENT
  Sex: Female

DRUGS (9)
  1. NUTROPIN [Suspect]
     Active Substance: SOMATROPIN
     Indication: Acromegaly
     Route: 058
     Dates: start: 1986
  2. NUTROPIN [Suspect]
     Active Substance: SOMATROPIN
     Indication: Growth hormone deficiency
  3. HYDROCORTISONE [Concomitant]
     Active Substance: HYDROCORTISONE
  4. LANSOPRAZOLE [Concomitant]
     Active Substance: LANSOPRAZOLE
  5. LEVOTHYROXINE [Concomitant]
     Active Substance: LEVOTHYROXINE\LEVOTHYROXINE SODIUM
  6. PROPRANOLOL [Concomitant]
     Active Substance: PROPRANOLOL HYDROCHLORIDE
  7. SERTRALINE [Concomitant]
     Active Substance: SERTRALINE HYDROCHLORIDE
  8. ATORVASTATIN [Concomitant]
     Active Substance: ATORVASTATIN
  9. RAMIPRIL [Concomitant]
     Active Substance: RAMIPRIL

REACTIONS (12)
  - Fall [Unknown]
  - Dementia [Unknown]
  - Cough [Unknown]
  - Fatigue [Unknown]
  - Cognitive disorder [Unknown]
  - Device information output issue [Unknown]
  - Product dose omission issue [Unknown]
  - Off label use [Unknown]
  - Product storage error [Unknown]
  - Circumstance or information capable of leading to medication error [Unknown]
  - Intercepted product administration error [Unknown]
  - Product use issue [Unknown]
